FAERS Safety Report 7383412-6 (Version None)
Quarter: 2011Q1

REPORT INFORMATION
  Report Type: 
  Country: None (occurrence: None)
  Receive Date: 20110325
  Receipt Date: 20110325
  Transmission Date: 20110831
  Serious: Yes (Hospitalization)
  Sender: FDA-Public Use
  Company Number: None

PATIENT
  Age: 107 Year
  Sex: Male

DRUGS (7)
  1. LEVOTHYROXINE [Concomitant]
  2. LISINOPRIL [Concomitant]
  3. COUMADIN [Suspect]
     Indication: DEEP VEIN THROMBOSIS
     Dosage: 4 MG DAILY PO CHRONIC AFIB/DVT
     Route: 048
  4. COUMADIN [Suspect]
     Indication: ATRIAL FIBRILLATION
     Dosage: 4 MG DAILY PO CHRONIC AFIB/DVT
     Route: 048
  5. CEPHALOXIN [Concomitant]
  6. LYRICA [Concomitant]
  7. LASIX [Concomitant]

REACTIONS (6)
  - RENAL FAILURE ACUTE [None]
  - GASTROINTESTINAL HAEMORRHAGE [None]
  - HAEMATOCRIT DECREASED [None]
  - URINARY TRACT INFECTION [None]
  - HAEMOGLOBIN DECREASED [None]
  - PNEUMONIA [None]
